FAERS Safety Report 13101552 (Version 1)
Quarter: 2017Q1

REPORT INFORMATION
  Report Type: Spontaneous
  Country: US (occurrence: US)
  Receive Date: 20170110
  Receipt Date: 20170110
  Transmission Date: 20170428
  Serious: Yes (Other)
  Sender: FDA-Public Use
  Company Number: US-BAYER-2017-002636

PATIENT
  Sex: Female

DRUGS (2)
  1. MIRENA [Suspect]
     Active Substance: LEVONORGESTREL
  2. MIRENA [Suspect]
     Active Substance: LEVONORGESTREL
     Dosage: UNK
     Dates: start: 200805

REACTIONS (17)
  - Loss of consciousness [None]
  - Night blindness [None]
  - Vitreous floaters [None]
  - Tinnitus [None]
  - Musculoskeletal pain [None]
  - Paraesthesia [None]
  - Neck pain [None]
  - Device dislocation [None]
  - Headache [None]
  - Weight increased [None]
  - Vision blurred [None]
  - Amnesia [None]
  - Dizziness [None]
  - Benign intracranial hypertension [None]
  - Blindness [None]
  - Diplopia [None]
  - Nausea [None]
